FAERS Safety Report 6358211-4 (Version None)
Quarter: 2009Q3

REPORT INFORMATION
  Report Type: 
  Country: None (occurrence: None)
  Receive Date: 20090916
  Receipt Date: 20090911
  Transmission Date: 20100115
  Serious: Yes (Hospitalization, Other)
  Sender: FDA-Public Use
  Company Number: US-ELI_LILLY_AND_COMPANY-US200909003041

PATIENT
  Sex: Female

DRUGS (4)
  1. HUMALOG MIX 75/25 [Suspect]
  2. JANUVIA [Concomitant]
  3. ZETIA [Concomitant]
  4. COREG [Concomitant]

REACTIONS (5)
  - ANKLE FRACTURE [None]
  - INJECTION SITE PRURITUS [None]
  - JOINT SWELLING [None]
  - LOSS OF CONSCIOUSNESS [None]
  - PRESYNCOPE [None]
